FAERS Safety Report 5444527-2 (Version None)
Quarter: 2007Q3

REPORT INFORMATION
  Report Type: 
  Country: None (occurrence: None)
  Receive Date: 20070906
  Receipt Date: 20070823
  Transmission Date: 20080115
  Serious: Yes (Hospitalization)
  Sender: FDA-Public Use
  Company Number: GB-AMGEN-UK240854

PATIENT
  Sex: Male

DRUGS (2)
  1. PANITUMUMAB [Suspect]
     Indication: COLORECTAL CANCER
     Route: 042
     Dates: start: 20070822
  2. IRINOTECAN HCL [Suspect]
     Route: 042
     Dates: start: 20070822

REACTIONS (5)
  - DIZZINESS [None]
  - HYPERSENSITIVITY [None]
  - HYPERTENSION [None]
  - SPEECH DISORDER [None]
  - VOMITING [None]
